FAERS Safety Report 6470484-6 (Version None)
Quarter: 2009Q4

REPORT INFORMATION
  Report Type: 
  Country: None (occurrence: None)
  Receive Date: 20091202
  Receipt Date: 20091202
  Transmission Date: 20100525
  Serious: No
  Sender: FDA-Public Use
  Company Number: None

PATIENT
  Age: 50 Year
  Sex: Female
  Weight: 90.7194 kg

DRUGS (1)
  1. LEVOXYL [Suspect]
     Indication: HYPOTHYROIDISM
     Dosage: 150 MG 1 TIME PER DAY PO
     Route: 048
     Dates: start: 19950501, end: 20071001

REACTIONS (5)
  - CONTUSION [None]
  - METABOLIC DISORDER [None]
  - MUSCLE SPASMS [None]
  - TOOTH DISORDER [None]
  - TOOTHACHE [None]
